FAERS Safety Report 12779474 (Version 10)
Quarter: 2020Q3

REPORT INFORMATION
  Report Type: Report from Study
  Country: CA (occurrence: CA)
  Receive Date: 20160926
  Receipt Date: 20200709
  Transmission Date: 20201102
  Serious: Yes (Other)
  Sender: FDA-Public Use
  Company Number: PHHY2016CA019556

PATIENT
  Age: 45 Year
  Sex: Female

DRUGS (1)
  1. GILENYA [Suspect]
     Active Substance: FINGOLIMOD HYDROCHLORIDE
     Indication: MULTIPLE SCLEROSIS
     Dosage: UNK, QD
     Route: 048

REACTIONS (20)
  - High density lipoprotein decreased [Unknown]
  - Carpal tunnel syndrome [Recovered/Resolved]
  - Blood creatinine decreased [Unknown]
  - Osteoarthritis [Not Recovered/Not Resolved]
  - Acne [Recovered/Resolved]
  - Menorrhagia [Recovered/Resolved]
  - Blood triglycerides increased [Unknown]
  - Somnolence [Recovered/Resolved]
  - Trigger finger [Not Recovered/Not Resolved]
  - Low density lipoprotein decreased [Unknown]
  - Diabetic cheiroarthropathy [Not Recovered/Not Resolved]
  - Dupuytren^s contracture [Unknown]
  - Blood alkaline phosphatase increased [Unknown]
  - Pain in extremity [Not Recovered/Not Resolved]
  - Folliculitis [Not Recovered/Not Resolved]
  - Lymphocyte count decreased [Recovered/Resolved]
  - Alanine aminotransferase increased [Recovered/Resolved]
  - Tenosynovitis stenosans [Not Recovered/Not Resolved]
  - Arthralgia [Not Recovered/Not Resolved]
  - Papule [Recovered/Resolved]

NARRATIVE: CASE EVENT DATE: 20140131
